FAERS Safety Report 8727047 (Version 3)
Quarter: 2013Q1

REPORT INFORMATION
  Report Type: Report from Study
  Country: GB (occurrence: GB)
  Receive Date: 20120816
  Receipt Date: 20130305
  Transmission Date: 20140127
  Serious: Yes (Hospitalization)
  Sender: FDA-Public Use
  Company Number: GB-GLAXOSMITHKLINE-B0822646A

PATIENT
  Age: 73 Year
  Sex: Male
  Weight: 62.4 kg

DRUGS (9)
  1. OFATUMUMAB [Suspect]
     Indication: CHRONIC LYMPHOCYTIC LEUKAEMIA
     Route: 042
     Dates: start: 20120531
  2. BENDAMUSTINE [Suspect]
     Indication: CHRONIC LYMPHOCYTIC LEUKAEMIA
     Route: 042
     Dates: start: 20120531
  3. PREDNISOLONE [Suspect]
     Dosage: 20MG AS REQUIRED
     Route: 048
     Dates: start: 20120531
  4. PARACETAMOL [Concomitant]
     Dosage: 1G AS REQUIRED
     Route: 048
     Dates: start: 20120531
  5. CHLORPHENIRAMINE [Concomitant]
     Route: 042
     Dates: start: 20120531
  6. ALLOPURINOL [Concomitant]
     Route: 048
     Dates: start: 20120531
  7. METOCLOPRAMIDE [Concomitant]
     Dosage: 10MG AS REQUIRED
     Route: 048
     Dates: start: 20120531
  8. ACICLOVIR [Concomitant]
  9. G-CSF [Concomitant]

REACTIONS (1)
  - Febrile neutropenia [Recovered/Resolved]
